FAERS Safety Report 7798268-7 (Version None)
Quarter: 2011Q4

REPORT INFORMATION
  Report Type: 
  Country: None (occurrence: None)
  Receive Date: 20111004
  Receipt Date: 20110919
  Transmission Date: 20120403
  Serious: Yes (Death)
  Sender: FDA-Public Use
  Company Number: 2011-392

PATIENT
  Age: 21 Year
  Sex: Male

DRUGS (10)
  1. SERTRALINE HYDROCHLORIDE [Concomitant]
  2. NAMENDA [Concomitant]
  3. FLUTICASONE PROPIONATE [Concomitant]
  4. MULTIVITAMIN (ASCORBIC ACID, CALCIUM PANTOTHENATE, ERGOCALCIFEROL, NIC [Concomitant]
  5. LITHIUM CARBONATE [Concomitant]
  6. GUANFACINE HYDROCHLORIDE [Concomitant]
  7. ASPIRIN [Concomitant]
  8. DIVALPROEX ER (VALPROATE SEMISODIUM) [Concomitant]
  9. FAZACLO ODT [Suspect]
     Indication: MANIA
     Dosage: 100 MG, QD, ORAL
     Route: 048
     Dates: start: 20091022, end: 20110909
  10. POLYETHYLENE GLYCOL [Concomitant]

REACTIONS (1)
  - DROWNING [None]
